FAERS Safety Report 8495885-6 (Version None)
Quarter: 2012Q2

REPORT INFORMATION
  Report Type: 
  Country: None (occurrence: None)
  Receive Date: 20120402
  Receipt Date: 20100607
  Transmission Date: 20120825
  Serious: Yes (Other)
  Sender: FDA-Public Use
  Company Number: PHHY2010US37105

PATIENT
  Sex: Female

DRUGS (6)
  1. EXFORGE HCT [Suspect]
  2. VITAMIN TAB [Concomitant]
  3. METOPROLOL SUCCINATE [Concomitant]
  4. CALTRATE +D (CALCIUM CARBONATE, VITAMIN D NOS) [Concomitant]
  5. ASPIRIN [Concomitant]
  6. OMEPRAZOLE [Concomitant]

REACTIONS (4)
  - CHOKING [None]
  - URTICARIA [None]
  - RASH ERYTHEMATOUS [None]
  - DRUG HYPERSENSITIVITY [None]
